FAERS Safety Report 7862876-5 (Version None)
Quarter: 2011Q4

REPORT INFORMATION
  Report Type: 
  Country: None (occurrence: None)
  Receive Date: 20111027
  Receipt Date: 20101116
  Transmission Date: 20120403
  Serious: No
  Sender: FDA-Public Use
  Company Number: US-AMGEN-USASP2010005463

PATIENT
  Age: 50 Year
  Sex: Female

DRUGS (2)
  1. GOLIMUMAB [Concomitant]
     Indication: RHEUMATOID ARTHRITIS
     Dosage: 50 MG, QMO
  2. ENBREL [Suspect]
     Indication: RHEUMATOID ARTHRITIS
     Dosage: 50 MG, QWK
     Dates: start: 20090101, end: 20100925

REACTIONS (1)
  - RHEUMATOID ARTHRITIS [None]
